FAERS Safety Report 4486103-4 (Version None)
Quarter: 2004Q4

REPORT INFORMATION
  Report Type: 
  Country: None (occurrence: None)
  Receive Date: 20041021
  Receipt Date: 20040929
  Transmission Date: 20050328
  Serious: Yes (Hospitalization)
  Sender: FDA-Public Use
  Company Number: F01200402969

PATIENT
  Age: 59 Year
  Sex: Male

DRUGS (3)
  1. (OXALIPLATIN)-SOLUTION-130MG/M2 [Suspect]
     Indication: COLORECTAL CANCER METASTATIC
     Dosage: 285 MG Q3W, INTRAVENOUS NOS
     Route: 042
     Dates: start: 20040826, end: 20040826
  2. (CAPECITABINE) - TABLET - 1000 MG/M2 [Suspect]
     Dosage: 2150 MG TWICE DAILY FROM DAY 1 TO DAY 15, Q3W, ORAL
     Route: 048
     Dates: start: 20040826
  3. ATENOLOL [Concomitant]

REACTIONS (2)
  - DIARRHOEA [None]
  - LETHARGY [None]
